FAERS Safety Report 24254811 (Version 2)
Quarter: 2024Q3

REPORT INFORMATION
  Report Type: Spontaneous
  Country: BR (occurrence: BR)
  Receive Date: 20240827
  Receipt Date: 20240906
  Transmission Date: 20241017
  Serious: Yes (Hospitalization, Other)
  Sender: NOVARTIS
  Company Number: BR-002147023-NVSC2024BR171604

PATIENT
  Sex: Female

DRUGS (1)
  1. KESIMPTA [Suspect]
     Active Substance: OFATUMUMAB
     Indication: Multiple sclerosis
     Dosage: 20 MG
     Route: 065
     Dates: start: 20221014

REACTIONS (5)
  - Multiple sclerosis relapse [Unknown]
  - Shock [Not Recovered/Not Resolved]
  - Product availability issue [Unknown]
  - Product administration interrupted [Unknown]
  - Product supply issue [Unknown]
